FAERS Safety Report 13700792 (Version 1)
Quarter: 2017Q2

REPORT INFORMATION
  Report Type: Report from Study
  Country: US (occurrence: US)
  Receive Date: 20170629
  Receipt Date: 20170629
  Transmission Date: 20170830
  Serious: Yes (Other)
  Sender: FDA-Public Use
  Company Number: US-SUCAMPO PHARMACEUTICALS INC.-SPI201700743

PATIENT

DRUGS (2)
  1. AMITIZA [Suspect]
     Active Substance: LUBIPROSTONE
     Indication: PRODUCT USED FOR UNKNOWN INDICATION
     Dosage: 24 MCG, QD
     Dates: start: 20170606, end: 20170611
  2. MIRALAX [Concomitant]
     Active Substance: POLYETHYLENE GLYCOL 3350
     Dosage: UNK
     Dates: end: 201706

REACTIONS (5)
  - Drug administration error [Unknown]
  - Chest discomfort [Unknown]
  - Vision blurred [Unknown]
  - Urinary tract infection bacterial [Unknown]
  - Diarrhoea [Unknown]

NARRATIVE: CASE EVENT DATE: 201705
